FAERS Safety Report 5088841-1 (Version None)
Quarter: 2006Q3

REPORT INFORMATION
  Report Type: 
  Country: None (occurrence: None)
  Receive Date: 20060824
  Receipt Date: 20060824
  Transmission Date: 20061208
  Serious: Yes (Other)
  Sender: FDA-Public Use
  Company Number: None

PATIENT
  Age: 48 Year
  Sex: Female
  Weight: 77.1115 kg

DRUGS (2)
  1. CIPRO [Suspect]
  2. BACTRIM [Suspect]

REACTIONS (9)
  - ABASIA [None]
  - CHOLECYSTOSTOMY [None]
  - DYSURIA [None]
  - ILL-DEFINED DISORDER [None]
  - LIVER DISORDER [None]
  - PAIN [None]
  - PRURITUS [None]
  - SCAR [None]
  - STEVENS-JOHNSON SYNDROME [None]
